FAERS Safety Report 17583970 (Version 2)
Quarter: 2020Q3

REPORT INFORMATION
  Report Type: Report from Study
  Country: US (occurrence: US)
  Receive Date: 20200326
  Receipt Date: 20200703
  Transmission Date: 20201102
  Serious: Yes (Other)
  Sender: FDA-Public Use
  Company Number: US-ROCHE-2466312

PATIENT
  Sex: Female

DRUGS (8)
  1. OFEV [Concomitant]
     Active Substance: NINTEDANIB
  2. ESBRIET [Suspect]
     Active Substance: PIRFENIDONE
     Route: 048
  3. PROMETHAZINE [Concomitant]
     Active Substance: PROMETHAZINE HYDROCHLORIDE
  4. ASPIRIN [ACETYLSALICYLIC ACID] [Concomitant]
     Active Substance: ASPIRIN
  5. ESBRIET [Suspect]
     Active Substance: PIRFENIDONE
     Indication: PULMONARY FIBROSIS
     Dosage: TAKE 2 TABLET(S) BY MOUTH 3 TIMES A DAY
     Route: 048
  6. ESBRIET [Suspect]
     Active Substance: PIRFENIDONE
     Indication: IDIOPATHIC PULMONARY FIBROSIS
     Dosage: TAKE 1 TABLET BY MOUTH 3 TIMES A DAY
     Route: 048
  7. ESBRIET [Suspect]
     Active Substance: PIRFENIDONE
     Dosage: THREE TABLETS, THREE TIMES A DAY
     Route: 048
  8. OMEPRAZOLE. [Concomitant]
     Active Substance: OMEPRAZOLE

REACTIONS (7)
  - Somnolence [Not Recovered/Not Resolved]
  - Herpes zoster [Unknown]
  - Nausea [Recovered/Resolved]
  - Circumstance or information capable of leading to medication error [Unknown]
  - Cough [Not Recovered/Not Resolved]
  - Urinary tract infection [Unknown]
  - Back pain [Not Recovered/Not Resolved]
